FAERS Safety Report 4999377-8 (Version None)
Quarter: 2006Q2

REPORT INFORMATION
  Report Type: 
  Country: None (occurrence: None)
  Receive Date: 20060510
  Receipt Date: 20060510
  Transmission Date: 20061013
  Serious: Yes (Hospitalization)
  Sender: FDA-Public Use
  Company Number: None

PATIENT
  Age: 58 Year
  Sex: Male

DRUGS (13)
  1. ARGATROBAN [Suspect]
     Indication: ATRIAL THROMBOSIS
     Dosage: 1 MCG/KG/MIN  17 MM/HR IV INFUSION
     Route: 042
     Dates: start: 20060207, end: 20060310
  2. ARGATROBAN [Suspect]
     Indication: HEPARIN-INDUCED THROMBOCYTOPENIA
     Dosage: 1 MCG/KG/MIN  17 MM/HR IV INFUSION
     Route: 042
     Dates: start: 20060207, end: 20060310
  3. ACETAMINOPHEN [Concomitant]
  4. ARGATROBAN INJ [Concomitant]
  5. SODIUM CHLORIDE INJ [Concomitant]
  6. CHLORHEXIDINE GLUCONATE [Concomitant]
  7. HYDROMORPHONE INJ [Concomitant]
  8. INSULIN REGULAR -HUMAN- INJ [Concomitant]
  9. LABETALOL HCL TAB [Concomitant]
  10. MORPHINE SULFATE INJ [Concomitant]
  11. NYSTATIN [Concomitant]
  12. ONDANSETRON HCL INJ [Concomitant]
  13. SODIUM CHLORIDE [Concomitant]

REACTIONS (1)
  - HAEMORRHAGE URINARY TRACT [None]
